FAERS Safety Report 18819146 (Version 3)
Quarter: 2021Q2

REPORT INFORMATION
  Report Type: Spontaneous
  Country: US (occurrence: US)
  Receive Date: 20210201
  Receipt Date: 20210404
  Transmission Date: 20210717
  Serious: Yes (Life-Threatening, Other)
  Sender: FDA-Public Use
  Company Number: NVSC2021US022445

PATIENT
  Sex: Female

DRUGS (4)
  1. FEMARA [Suspect]
     Active Substance: LETROZOLE
     Indication: BREAST CANCER
     Dosage: 2.5 MG, QD
     Route: 065
  2. FEMARA [Suspect]
     Active Substance: LETROZOLE
     Dosage: 2.5 MG, QD
     Route: 065
  3. FEMARA [Suspect]
     Active Substance: LETROZOLE
     Dosage: 2.5 MG (EVERY OTHER DAY.)
     Route: 065
     Dates: end: 20210131
  4. MULTI VITAMIN [Concomitant]
     Active Substance: VITAMINS
     Indication: PRODUCT USED FOR UNKNOWN INDICATION
     Route: 065

REACTIONS (15)
  - Feeling abnormal [Unknown]
  - Immune system disorder [Unknown]
  - Hypoaesthesia [Unknown]
  - Suicidal ideation [Recovering/Resolving]
  - Kyphosis [Unknown]
  - Asthenia [Unknown]
  - Pain in extremity [Unknown]
  - Epistaxis [Unknown]
  - Paraesthesia [Unknown]
  - General physical health deterioration [Unknown]
  - Arthralgia [Unknown]
  - Breast cancer recurrent [Unknown]
  - Gait inability [Unknown]
  - Vision blurred [Unknown]
  - Swelling [Unknown]
